FAERS Safety Report 7044060-0 (Version None)
Quarter: 2010Q4

REPORT INFORMATION
  Report Type: 
  Country: None (occurrence: None)
  Receive Date: 20101013
  Receipt Date: 20101004
  Transmission Date: 20110411
  Serious: Yes (Death, Hospitalization)
  Sender: FDA-Public Use
  Company Number: BE-PFIZER INC-2010121944

PATIENT
  Age: 71 Year
  Sex: Female

DRUGS (1)
  1. SUTENT [Suspect]
     Indication: RENAL CELL CARCINOMA
     Dosage: 50 MG, 1X/DAY
     Route: 048
     Dates: start: 20100624

REACTIONS (3)
  - ATRIOVENTRICULAR BLOCK COMPLETE [None]
  - THROMBOCYTOPENIA [None]
  - TUMOUR LYSIS SYNDROME [None]
